FAERS Safety Report 7304530-4 (Version None)
Quarter: 2011Q1

REPORT INFORMATION
  Report Type: 
  Country: None (occurrence: None)
  Receive Date: 20110221
  Receipt Date: 20100812
  Transmission Date: 20110831
  Serious: Yes (Life-Threatening, Other)
  Sender: FDA-Public Use
  Company Number: PHHY2010JP54236

PATIENT
  Sex: Female
  Weight: 37 kg

DRUGS (8)
  1. NEORAL [Concomitant]
     Indication: APLASTIC ANAEMIA
     Dosage: 200 MG, UNK
     Dates: start: 20081211, end: 20100603
  2. EXJADE [Suspect]
     Indication: IRON OVERLOAD
     Dosage: 500 MG, DAILY
     Route: 048
     Dates: start: 20100216, end: 20100526
  3. MAGLAX [Concomitant]
     Indication: PROPHYLAXIS
     Dosage: 990 MG, UNK
     Route: 048
     Dates: start: 20090619, end: 20100603
  4. ZYPREXA [Concomitant]
     Dosage: 5 MG, UNK
     Route: 048
     Dates: start: 20100527, end: 20100602
  5. TRANSAMIN [Concomitant]
     Indication: APLASTIC ANAEMIA
     Dosage: 750 MG, UNK
     Route: 048
     Dates: start: 20100527, end: 20100602
  6. KETOPROFEN [Concomitant]
     Dosage: 1 DF, UNK
     Dates: start: 20090717, end: 20100416
  7. RED CELLS MAP [Concomitant]
  8. NAUZELIN [Concomitant]
     Indication: PROPHYLAXIS
     Dosage: 10 MG, UNK
     Dates: start: 20100216, end: 20100308

REACTIONS (5)
  - PNEUMONIA ASPIRATION [None]
  - BLOOD LACTATE DEHYDROGENASE INCREASED [None]
  - HAEMOGLOBIN DECREASED [None]
  - PLATELET COUNT INCREASED [None]
  - BLOOD LACTATE DEHYDROGENASE DECREASED [None]
